FAERS Safety Report 5931380-3 (Version None)
Quarter: 2008Q4

REPORT INFORMATION
  Report Type: 
  Country: None (occurrence: None)
  Receive Date: 20081027
  Receipt Date: 20081015
  Transmission Date: 20090506
  Serious: Yes (Other)
  Sender: FDA-Public Use
  Company Number: CN-ROCHE-519291

PATIENT
  Sex: Male
  Weight: 63 kg

DRUGS (3)
  1. XELODA [Suspect]
     Indication: GASTRIC CANCER
     Route: 048
     Dates: start: 20070910, end: 20071101
  2. XELODA [Suspect]
     Route: 048
     Dates: start: 20080601
  3. CHINESE MEDICINE NOS [Concomitant]
     Indication: GASTRIC CANCER
     Dosage: THE NAME WAS JING LONG JIAO NANG.
     Route: 048
     Dates: start: 20080601

REACTIONS (4)
  - ABDOMINAL PAIN UPPER [None]
  - ASTHENIA [None]
  - METASTASES TO LYMPH NODES [None]
  - MOUTH ULCERATION [None]
